FAERS Safety Report 4750167-0 (Version None)
Quarter: 2005Q3

REPORT INFORMATION
  Report Type: 
  Country: None (occurrence: None)
  Receive Date: 20050818
  Receipt Date: 20050810
  Transmission Date: 20060218
  Serious: Yes (Hospitalization, Other)
  Sender: FDA-Public Use
  Company Number: TPA2005A00917

PATIENT
  Age: 56 Year
  Sex: Female
  Weight: 95.2554 kg

DRUGS (4)
  1. ACTOS [Suspect]
     Indication: DIABETES MELLITUS NON-INSULIN-DEPENDENT
     Dosage: 30 MG, 1 IN 1 D, PER ORAL
     Route: 048
     Dates: start: 20050101, end: 20050801
  2. BYETTA [Suspect]
     Indication: DIABETES MELLITUS
     Dosage: INJECTION
     Dates: start: 20050713
  3. CALCIUM CHANNEL BLOCKER (CALCIUM CHANNEL BLOCKERS) (300 MILLIGRAM) [Concomitant]
  4. LISINOPRIL (LISINOPRIL ) (10 MILLIGRAM) [Concomitant]

REACTIONS (7)
  - CARDIAC FAILURE [None]
  - CHEST PAIN [None]
  - DYSPNOEA [None]
  - MYOCARDIAL INFARCTION [None]
  - OEDEMA PERIPHERAL [None]
  - THYROID NEOPLASM [None]
  - WEIGHT INCREASED [None]
